APPROVED DRUG PRODUCT: CEFIXIME
Active Ingredient: CEFIXIME
Strength: 500MG/5ML
Dosage Form/Route: FOR SUSPENSION;ORAL
Application: A206939 | Product #001 | TE Code: AB
Applicant: AJENAT PHARMACEUTICALS LLC
Approved: Feb 6, 2017 | RLD: No | RS: No | Type: RX